FAERS Safety Report 8460145-6 (Version None)
Quarter: 2012Q2

REPORT INFORMATION
  Report Type: 
  Country: None (occurrence: None)
  Receive Date: 20120323
  Receipt Date: 20111013
  Transmission Date: 20120825
  Serious: Yes (Other)
  Sender: FDA-Public Use
  Company Number: 163-21880-11101612

PATIENT
  Age: 79 Year
  Sex: Male

DRUGS (8)
  1. GABAPENTIN [Concomitant]
  2. FLONASE [Concomitant]
  3. BACTRIM [Concomitant]
  4. LEXAPRO [Concomitant]
  5. ALLOPURINOL [Concomitant]
  6. REVLIMID [Suspect]
     Indication: CHRONIC LYMPHOCYTIC LEUKAEMIA
     Dosage: 5 MG, 21/28, PO
     Route: 048
     Dates: start: 20110509, end: 20110529
  7. ACYCLOVIR [Concomitant]
  8. ADVAIR HFA [Concomitant]

REACTIONS (3)
  - TUMOUR FLARE [None]
  - FATIGUE [None]
  - CONDITION AGGRAVATED [None]
